FAERS Safety Report 23663342 (Version 1)
Quarter: 2024Q1

REPORT INFORMATION
  Report Type: Spontaneous
  Country: FR (occurrence: FR)
  Receive Date: 20240322
  Receipt Date: 20240322
  Transmission Date: 20240410
  Serious: Yes (Hospitalization)
  Sender: FDA-Public Use
  Company Number: None

PATIENT
  Age: 71 Year
  Sex: Female
  Weight: 40 kg

DRUGS (5)
  1. ACETAMINOPHEN [Suspect]
     Active Substance: ACETAMINOPHEN
     Indication: Pain
     Dosage: ROUTE OF ADMIN: INTRAVENOUS USE
     Dates: start: 20230701, end: 20230705
  2. NEFOPAM VIATRIS 20 mg/2 ml, solution for injection [Concomitant]
     Indication: Product used for unknown indication
  3. TRIMEBUTINE MEDISOL 50 mg/5 mL, solution for injection [Concomitant]
     Indication: Product used for unknown indication
  4. EUPANTOL 40 mg, powder for solution for injection (IV) [Concomitant]
     Indication: Product used for unknown indication
  5. CEFTRIAXONE VIATRIS 1 g, powder for solution for injection [Concomitant]
     Indication: Product used for unknown indication

REACTIONS (2)
  - Dosage not adjusted [Recovered/Resolved]
  - Drug-induced liver injury [Recovered/Resolved]

NARRATIVE: CASE EVENT DATE: 20230701
